FAERS Safety Report 11411959 (Version 2)
Quarter: 2015Q3

REPORT INFORMATION
  Report Type: Spontaneous
  Country: US (occurrence: US)
  Receive Date: 20150821
  Receipt Date: 20150903
  Transmission Date: 20151125
  Serious: No
  Sender: FDA-Public Use
  Company Number: US-ELI_LILLY_AND_COMPANY-US201201002188

PATIENT
  Sex: Female

DRUGS (6)
  1. HUMULIN N [Suspect]
     Active Substance: INSULIN HUMAN
     Indication: TYPE 1 DIABETES MELLITUS
     Dosage: 100 U, EACH MORNING
  2. HUMULIN N [Suspect]
     Active Substance: INSULIN HUMAN
     Indication: TYPE 1 DIABETES MELLITUS
     Dosage: 100 U, EACH MORNING
  3. HUMALOG [Suspect]
     Active Substance: INSULIN LISPRO
     Dosage: 20 U, PRN
  4. HUMALOG [Suspect]
     Active Substance: INSULIN LISPRO
     Indication: TYPE 1 DIABETES MELLITUS
     Dosage: 10 U, OTHER
  5. HUMULIN N [Suspect]
     Active Substance: INSULIN HUMAN
     Dosage: 80 U, EACH EVENING
  6. HUMULIN N [Suspect]
     Active Substance: INSULIN HUMAN
     Dosage: 80 U, EACH EVENING

REACTIONS (5)
  - Pain in extremity [Unknown]
  - Arthritis [Not Recovered/Not Resolved]
  - Weight decreased [Unknown]
  - Fibromyalgia [Not Recovered/Not Resolved]
  - Diabetic neuropathy [Unknown]
